FAERS Safety Report 5596025-3 (Version None)
Quarter: 2008Q1

REPORT INFORMATION
  Report Type: 
  Country: None (occurrence: None)
  Receive Date: 20080118
  Receipt Date: 20080107
  Transmission Date: 20080703
  Serious: Yes (Other)
  Sender: FDA-Public Use
  Company Number: JP-ROCHE-540268

PATIENT
  Age: 69 Year
  Sex: Male
  Weight: 45.3 kg

DRUGS (17)
  1. METHOXY POLYETHYLENE GLYCOL-EPOETIN BETA [Suspect]
     Route: 058
     Dates: start: 20070221, end: 20070613
  2. METHOXY POLYETHYLENE GLYCOL-EPOETIN BETA [Suspect]
     Route: 058
     Dates: start: 20070613, end: 20071001
  3. METHOXY POLYETHYLENE GLYCOL-EPOETIN BETA [Suspect]
     Route: 058
     Dates: start: 20071001, end: 20071029
  4. METHOXY POLYETHYLENE GLYCOL-EPOETIN BETA [Suspect]
     Route: 058
     Dates: start: 20071029, end: 20071112
  5. ADALAT [Concomitant]
     Dates: end: 20071119
  6. AMLODIPINE BESYLATE [Concomitant]
     Dates: end: 20071202
  7. ALFAROL [Concomitant]
  8. OLMESARTAN MEDOXOMIL [Concomitant]
     Dates: end: 20080104
  9. DOXAZOSIN MESYLATE [Concomitant]
     Dates: end: 20080104
  10. ALLOPURINOL [Concomitant]
  11. METOPROLOL TARTRATE [Concomitant]
     Dates: end: 20080104
  12. TAKEPRON [Concomitant]
  13. PRECIPITATED CALCIUM CARBONATE [Concomitant]
  14. ASPIRIN [Concomitant]
     Dates: end: 20071203
  15. LAXOBERON [Concomitant]
     Dosage: DOSAGE REPORTED AS 5 DAILY.
  16. VITAMEDIN [Concomitant]
  17. FURSEMIDE [Concomitant]
     Dosage: DOSAGE REPORTED AS 1.8, 2.0 AND 2.2.
     Dates: end: 20070805

REACTIONS (1)
  - BILE DUCT CANCER [None]
